FAERS Safety Report 19606542 (Version 2)
Quarter: 2021Q3

REPORT INFORMATION
  Report Type: Report from Study
  Country: US (occurrence: US)
  Receive Date: 20210725
  Receipt Date: 20210918
  Transmission Date: 20211014
  Serious: Yes (Other)
  Sender: FDA-Public Use
  Company Number: NVSC2021US160477

PATIENT
  Sex: Female

DRUGS (1)
  1. ENTRESTO [Suspect]
     Active Substance: SACUBITRIL\VALSARTAN
     Indication: CARDIAC FAILURE CHRONIC
     Dosage: 200 MG, BID (97/103 MG)
     Route: 048
     Dates: start: 20210510

REACTIONS (3)
  - Thrombosis [Unknown]
  - Cerebral disorder [Unknown]
  - Dizziness [Unknown]
